FAERS Safety Report 8435585-1 (Version None)
Quarter: 2012Q2

REPORT INFORMATION
  Report Type: 
  Country: None (occurrence: None)
  Receive Date: 20120608
  Receipt Date: 20120530
  Transmission Date: 20120825
  Serious: Yes (Other)
  Sender: FDA-Public Use
  Company Number: 2012SP029170

PATIENT

DRUGS (4)
  1. RIBAVIRIN [Suspect]
     Indication: HEPATITIS C
     Dosage: PO
     Route: 048
  2. RIBAVIRIN [Suspect]
     Indication: HEPATIC CIRRHOSIS
     Dosage: PO
     Route: 048
  3. PEGINTERFERON ALFA-2B [Suspect]
     Indication: HEPATIC CIRRHOSIS
     Dosage: SC
     Route: 058
  4. PEGINTERFERON ALFA-2B [Suspect]
     Indication: HEPATITIS C
     Dosage: SC
     Route: 058

REACTIONS (2)
  - JAUNDICE [None]
  - CEREBRAL HAEMORRHAGE [None]
